FAERS Safety Report 5088310-9 (Version None)
Quarter: 2006Q3

REPORT INFORMATION
  Report Type: 
  Country: None (occurrence: None)
  Receive Date: 20060821
  Receipt Date: 20060810
  Transmission Date: 20061208
  Serious: Yes (Other)
  Sender: FDA-Public Use
  Company Number: 2006098511

PATIENT
  Sex: Female

DRUGS (3)
  1. SUDAFED 12 HOUR [Suspect]
     Dosage: ORAL
     Route: 048
  2. SUDAFED 12 HOUR [Suspect]
     Dosage: ORAL
     Route: 048
  3. DRUG, UNSPECIFIED (DRUG, UNSPECIFIED) [Suspect]
     Indication: THYROID DISORDER

REACTIONS (2)
  - DEPRESSION [None]
  - SUICIDAL IDEATION [None]
